FAERS Safety Report 8497375-3 (Version None)
Quarter: 2012Q3

REPORT INFORMATION
  Report Type: 
  Country: None (occurrence: None)
  Receive Date: 20120709
  Receipt Date: 20120608
  Transmission Date: 20120928
  Serious: No
  Sender: FDA-Public Use
  Company Number: US-AMGEN-USASP2012035979

PATIENT
  Age: 57 Year
  Sex: Female

DRUGS (6)
  1. PREDNISONE [Concomitant]
     Dosage: 1 MG, UNK
  2. ENBREL [Suspect]
     Indication: RHEUMATOID ARTHRITIS
     Dosage: 50 MG, QWK
     Dates: start: 20110401, end: 20120604
  3. FOLIC ACID [Concomitant]
     Dosage: 1 MG, UNK
  4. IBUPROFEN [Concomitant]
     Dosage: UNK
  5. METHOTREXATE [Concomitant]
     Dosage: UNK
  6. CITALOPRAM HYDROBROMIDE [Concomitant]
     Dosage: 1 MG, UNK

REACTIONS (1)
  - DRUG INEFFECTIVE [None]
